FAERS Safety Report 25814521 (Version 1)
Quarter: 2025Q3

REPORT INFORMATION
  Report Type: Spontaneous
  Country: EU (occurrence: EU)
  Receive Date: 20250917
  Receipt Date: 20250917
  Transmission Date: 20251020
  Serious: Yes (Hospitalization)
  Sender: MERCK SHARP & DOHME LLC
  Company Number: None

PATIENT
  Age: 67 Year
  Sex: Female

DRUGS (5)
  1. KEYTRUDA [Suspect]
     Active Substance: PEMBROLIZUMAB
     Indication: Metastatic malignant melanoma
     Route: 042
     Dates: start: 20250520, end: 20250812
  2. KEYTRUDA [Suspect]
     Active Substance: PEMBROLIZUMAB
     Indication: Metastatic malignant melanoma
     Route: 042
     Dates: start: 20241212, end: 20250304
  3. Paracetamol 1.000 mg 20 comprimidos [Concomitant]
     Route: 048
     Dates: start: 20250808
  4. Tacrolimus 1 mg/g pomada 30 g 1 tubo [Concomitant]
     Route: 061
     Dates: start: 20130419
  5. ATORVASTATIN CINFA 10 mg FILM-COATED TABLETS GENERIC, 28 tablets [Concomitant]
     Route: 048
     Dates: start: 20250711

REACTIONS (1)
  - Capillary leak syndrome [Recovering/Resolving]

NARRATIVE: CASE EVENT DATE: 20250820
